FAERS Safety Report 5244095-4 (Version None)
Quarter: 2007Q1

REPORT INFORMATION
  Report Type: 
  Country: None (occurrence: None)
  Receive Date: 20061201
  Receipt Date: 20061016
  Transmission Date: 20070707
  Serious: No
  Sender: FDA-Public Use
  Company Number: 2006PV019623

PATIENT
  Age: 70 Year
  Sex: Male
  Weight: 97.977 kg

DRUGS (11)
  1. BYETTA [Suspect]
     Indication: DIABETES MELLITUS NON-INSULIN-DEPENDENT
     Dosage: SEE IMAGE
     Route: 058
     Dates: start: 20060809, end: 20060907
  2. BYETTA [Suspect]
     Indication: DIABETES MELLITUS NON-INSULIN-DEPENDENT
     Dosage: SEE IMAGE
     Route: 058
     Dates: start: 20060908
  3. METFORMIN [Concomitant]
  4. GLIPIZIDE [Concomitant]
  5. DEMADEX [Concomitant]
  6. GLUCOPHAGE [Concomitant]
  7. METHOTREXATE [Concomitant]
  8. OMEPRAZOLE [Concomitant]
  9. COMBIVENT [Concomitant]
  10. COUMADIN [Concomitant]
  11. PREDNISONE [Concomitant]

REACTIONS (7)
  - ASTHENIA [None]
  - CONDITION AGGRAVATED [None]
  - DIARRHOEA [None]
  - FLATULENCE [None]
  - HYPERHIDROSIS [None]
  - PYREXIA [None]
  - WEIGHT INCREASED [None]
